FAERS Safety Report 25386657 (Version 1)
Quarter: 2025Q2

REPORT INFORMATION
  Report Type: Spontaneous
  Country: CN (occurrence: CN)
  Receive Date: 20250602
  Receipt Date: 20250602
  Transmission Date: 20250716
  Serious: Yes (Hospitalization, Other)
  Sender: NOVARTIS
  Company Number: CN-002147023-NVSC2025CN086470

PATIENT
  Age: 58 Year
  Sex: Male

DRUGS (6)
  1. LEQVIO [Suspect]
     Active Substance: INCLISIRAN SODIUM
     Indication: Product used for unknown indication
     Route: 058
     Dates: start: 20250512
  2. RABEPRAZOLE SODIUM [Concomitant]
     Active Substance: RABEPRAZOLE SODIUM
     Indication: Gastric ulcer
     Route: 048
     Dates: start: 202503
  3. ASPIRIN [Concomitant]
     Active Substance: ASPIRIN
     Indication: Antithrombin III deficiency
     Route: 048
     Dates: start: 202503
  4. Essentiale [Concomitant]
     Indication: Hepatic enzyme abnormal
     Route: 048
     Dates: start: 202503
  5. EZETIMIBE [Concomitant]
     Active Substance: EZETIMIBE
     Indication: Hypercholesterolaemia
     Route: 048
     Dates: start: 202503
  6. CLOPIDOGREL BISULFATE [Concomitant]
     Active Substance: CLOPIDOGREL BISULFATE
     Indication: Acute coronary syndrome
     Route: 048
     Dates: start: 202503

REACTIONS (9)
  - Temperature intolerance [Unknown]
  - Abdominal discomfort [Unknown]
  - Fatigue [Unknown]
  - Asthenia [Unknown]
  - Arthralgia [Unknown]
  - Hyperhidrosis [Unknown]
  - Dizziness [Unknown]
  - Acute hepatic failure [Not Recovered/Not Resolved]
  - Hepatic function abnormal [Unknown]
